FAERS Safety Report 4518733-5 (Version None)
Quarter: 2004Q4

REPORT INFORMATION
  Report Type: 
  Country: None (occurrence: None)
  Receive Date: 20041201
  Receipt Date: 20030523
  Transmission Date: 20050328
  Serious: Yes (Death, Hospitalization)
  Sender: FDA-Public Use
  Company Number: 03USA0021

PATIENT
  Age: 67 Year
  Sex: Female

DRUGS (4)
  1. GLIADEL [Suspect]
     Indication: GLIOBLASTOMA MULTIFORME
     Dosage: 8 WAFERS, IMPLANT
     Dates: start: 20030514
  2. DEXAMETHASONE [Concomitant]
  3. VALPROATE [Concomitant]
  4. DILANTIN [Concomitant]

REACTIONS (5)
  - CEREBRAL HAEMORRHAGE [None]
  - COMA [None]
  - HEMIPARESIS [None]
  - LETHARGY [None]
  - POST PROCEDURAL COMPLICATION [None]
